FAERS Safety Report 7921789-0 (Version None)
Quarter: 2011Q4

REPORT INFORMATION
  Report Type: 
  Country: None (occurrence: None)
  Receive Date: 20111117
  Receipt Date: 20111111
  Transmission Date: 20120403
  Serious: Yes (Hospitalization)
  Sender: FDA-Public Use
  Company Number: IT-GLAXOSMITHKLINE-B0763236A

PATIENT
  Sex: Male

DRUGS (7)
  1. ASPIRIN [Concomitant]
  2. PREDNISONE [Suspect]
     Indication: MULTIPLE MYELOMA
     Dosage: 50MG PER DAY
     Route: 048
     Dates: start: 20110608, end: 20110611
  3. ALKERAN [Suspect]
     Indication: MULTIPLE MYELOMA
     Dosage: 10MG PER DAY
     Route: 048
     Dates: start: 20110608, end: 20110611
  4. THALIDOMIDE [Suspect]
     Indication: MULTIPLE MYELOMA
     Dosage: 50MG PER DAY
     Route: 048
     Dates: start: 20110608, end: 20110611
  5. ARANESP [Concomitant]
  6. UNKNOWN DRUG [Concomitant]
  7. ALLOPURINOL [Concomitant]

REACTIONS (1)
  - HICCUPS [None]
